FAERS Safety Report 16314228 (Version 1)
Quarter: 2019Q2

REPORT INFORMATION
  Report Type: Spontaneous
  Country: US (occurrence: US)
  Receive Date: 20190410
  Receipt Date: 20190410
  Transmission Date: 20190711
  Serious: No
  Sender: FDA-Public Use
  Company Number: None

PATIENT
  Age: 0 Day
  Sex: Female

DRUGS (1)
  1. RHOGAM [Suspect]
     Active Substance: HUMAN RHO(D) IMMUNE GLOBULIN

REACTIONS (5)
  - Constipation [None]
  - Anal haemorrhage [None]
  - Autism spectrum disorder [None]
  - Metal poisoning [None]
  - Nervous system disorder [None]

NARRATIVE: CASE EVENT DATE: 20150701
